FAERS Safety Report 10705292 (Version 2)
Quarter: 2015Q1

REPORT INFORMATION
  Report Type: Spontaneous
  Country: JP (occurrence: JP)
  Receive Date: 20150112
  Receipt Date: 20150112
  Transmission Date: 20150721
  Serious: Yes (Hospitalization)
  Sender: FDA-Public Use
  Company Number: JP-PFIZER INC-2014188529

PATIENT
  Age: 49 Year
  Sex: Male

DRUGS (1)
  1. TORISEL [Suspect]
     Active Substance: TEMSIROLIMUS
     Indication: RENAL CELL CARCINOMA
     Dosage: 25 MG, WEEKLY
     Route: 041
     Dates: start: 201403, end: 20140618

REACTIONS (6)
  - Pleural effusion [Not Recovered/Not Resolved]
  - Interstitial lung disease [Recovering/Resolving]
  - Tracheal haemorrhage [Recovering/Resolving]
  - Bronchial haemorrhage [Recovering/Resolving]
  - Renal cell carcinoma [Not Recovered/Not Resolved]
  - Disease progression [Not Recovered/Not Resolved]

NARRATIVE: CASE EVENT DATE: 20140314
